FAERS Safety Report 5631952-X (Version None)
Quarter: 2008Q1

REPORT INFORMATION
  Report Type: 
  Country: None (occurrence: None)
  Receive Date: 20080220
  Receipt Date: 20080208
  Transmission Date: 20080703
  Serious: Yes (Other)
  Sender: FDA-Public Use
  Company Number: GB-ELI_LILLY_AND_COMPANY-GB200802001923

PATIENT
  Age: 60 Year
  Sex: Male
  Weight: 131 kg

DRUGS (12)
  1. CIALIS [Suspect]
     Dosage: 1 D/F, AS NEEDED
     Route: 048
  2. XENICAL [Concomitant]
     Indication: OBESITY
     Dosage: 120 MG, 3/D
     Route: 048
     Dates: start: 20070522
  3. CETRABEN EMOLLIENT [Concomitant]
  4. CLOPIDOGREL [Concomitant]
     Indication: ANTICOAGULANT THERAPY
     Dosage: 75 MG, UNK
     Route: 048
     Dates: start: 20070817
  5. FOSINOPRIL SODIUM [Concomitant]
     Indication: HYPERTENSION
     Dosage: 30 MG, UNK
     Route: 048
  6. HYDROXYZINE [Concomitant]
     Indication: PRURITUS
     Dosage: 25 MG, UNK
     Route: 048
  7. LEVEMIR [Concomitant]
     Indication: DIABETES MELLITUS
     Route: 058
  8. NOVORAPID [Concomitant]
     Indication: DIABETES MELLITUS
     Dosage: 48 IU, UNK
     Route: 058
  9. PANTOPRAZOLE [Concomitant]
     Indication: GASTRIC ULCER
     Dosage: 20 MG, UNK
     Route: 048
  10. ACETAMINOPHEN [Concomitant]
  11. PIOGLITAZONE [Concomitant]
     Indication: DIABETES MELLITUS
     Dosage: 300 MG, UNK
     Route: 048
  12. SIMVASTATIN [Concomitant]
     Indication: HYPERCHOLESTEROLAEMIA
     Dosage: 20 MG, UNK
     Route: 048

REACTIONS (5)
  - BLINDNESS TRANSIENT [None]
  - BLOOD GLUCOSE DECREASED [None]
  - CORNEAL DIAMETER INCREASED [None]
  - GLYCOSYLATED HAEMOGLOBIN DECREASED [None]
  - THROAT CANCER [None]
